FAERS Safety Report 25388530 (Version 1)
Quarter: 2025Q2

REPORT INFORMATION
  Report Type: Spontaneous
  Country: US (occurrence: US)
  Receive Date: 20250603
  Receipt Date: 20250603
  Transmission Date: 20250717
  Serious: Yes (Other)
  Sender: NOVO NORDISK
  Company Number: US-NOVOPROD-1443077

PATIENT
  Age: 63 Year
  Weight: 113 kg

DRUGS (1)
  1. WEGOVY [Suspect]
     Active Substance: SEMAGLUTIDE
     Indication: Weight control

REACTIONS (2)
  - Endometrial cancer stage III [Unknown]
  - Hereditary non-polyposis colorectal cancer syndrome [Unknown]

NARRATIVE: CASE EVENT DATE: 20230101
